FAERS Safety Report 5432267-5 (Version None)
Quarter: 2007Q3

REPORT INFORMATION
  Report Type: 
  Country: None (occurrence: None)
  Receive Date: 20070830
  Receipt Date: 20070821
  Transmission Date: 20080115
  Serious: Yes (Other)
  Sender: FDA-Public Use
  Company Number: US-PFIZER INC-2007069681

PATIENT
  Sex: Female
  Weight: 109 kg

DRUGS (10)
  1. LYRICA [Suspect]
     Indication: PAIN IN EXTREMITY
  2. NADOLOL [Concomitant]
  3. WARFARIN SODIUM [Concomitant]
  4. ASPIRIN [Concomitant]
  5. METHOCARBAMOL [Concomitant]
  6. LASIX [Concomitant]
  7. ACTONEL [Concomitant]
  8. LAXATIVES [Concomitant]
  9. EVION [Concomitant]
  10. METOPROLOL SUCCINATE [Concomitant]

REACTIONS (2)
  - CONVULSION [None]
  - WEIGHT INCREASED [None]
